FAERS Safety Report 23303563 (Version 1)
Quarter: 2023Q4

REPORT INFORMATION
  Report Type: Spontaneous
  Country: US (occurrence: US)
  Receive Date: 20231215
  Receipt Date: 20231215
  Transmission Date: 20240109
  Serious: Yes (Other)
  Sender: FDA-Public Use
  Company Number: US-009507513-2312USA004018

PATIENT
  Sex: Male

DRUGS (2)
  1. BRIDION [Suspect]
     Active Substance: SUGAMMADEX
     Indication: Neuromuscular blockade reversal
     Dosage: 200 MILLIGRAM, ONCE
     Route: 042
     Dates: start: 20231207
  2. BRIDION [Suspect]
     Active Substance: SUGAMMADEX
     Dosage: 100 MILLIGRAM, ONCE
     Route: 042
     Dates: start: 20231207

REACTIONS (3)
  - Paralysis [Recovered/Resolved]
  - Therapy non-responder [Recovered/Resolved]
  - Extra dose administered [Unknown]

NARRATIVE: CASE EVENT DATE: 20231207
